FAERS Safety Report 15964154 (Version 1)
Quarter: 2019Q1

REPORT INFORMATION
  Report Type: Report from Study
  Country: None (occurrence: DE)
  Receive Date: 20190214
  Receipt Date: 20190214
  Transmission Date: 20190417
  Serious: Yes (Hospitalization, Other)
  Sender: FDA-Public Use
  Company Number: DE-ABBVIE-19K-062-2652324-00

PATIENT
  Sex: Male

DRUGS (23)
  1. HUMIRA [Suspect]
     Active Substance: ADALIMUMAB
     Dosage: 40 MG, UNK
     Route: 065
     Dates: start: 20120217, end: 2012
  2. HUMIRA [Suspect]
     Active Substance: ADALIMUMAB
     Dosage: 40 MG, UNK
     Route: 065
     Dates: start: 20140127, end: 2014
  3. METHOTREXATE. [Suspect]
     Active Substance: METHOTREXATE
     Dosage: 25 MG, UNK
     Route: 065
     Dates: start: 20140115, end: 201401
  4. METHOTREXATE. [Suspect]
     Active Substance: METHOTREXATE
     Dosage: 25 MG, UNK
     Route: 065
     Dates: start: 20140127, end: 2014
  5. METHOTREXATE. [Suspect]
     Active Substance: METHOTREXATE
     Dosage: 25 MG, UNK
     Route: 065
     Dates: start: 20140728, end: 201407
  6. HUMIRA [Suspect]
     Active Substance: ADALIMUMAB
     Dosage: 40 MG, UNK
     Route: 065
     Dates: start: 20140728
  7. METHOTREXATE. [Suspect]
     Active Substance: METHOTREXATE
     Indication: PRODUCT USED FOR UNKNOWN INDICATION
     Dosage: 22.5 MG, UNK
     Route: 065
     Dates: start: 20120118, end: 2012
  8. METHOTREXATE. [Suspect]
     Active Substance: METHOTREXATE
     Dosage: 22.5 MG, UNK
     Route: 065
     Dates: start: 20130729
  9. METHOTREXATE. [Suspect]
     Active Substance: METHOTREXATE
     Dosage: 25 MG, UNK
     Route: 065
     Dates: start: 20160804
  10. HUMIRA [Suspect]
     Active Substance: ADALIMUMAB
     Dosage: 40 MG, UNK
     Route: 065
     Dates: start: 20130729
  11. MABTHERA [Suspect]
     Active Substance: RITUXIMAB
     Dosage: 1000 MG
     Route: 065
     Dates: start: 201711
  12. METHOTREXATE. [Suspect]
     Active Substance: METHOTREXATE
     Dosage: 25 MG, UNK
     Route: 065
     Dates: start: 20150725
  13. HUMIRA [Suspect]
     Active Substance: ADALIMUMAB
     Dosage: 40 MG, UNK
     Route: 065
     Dates: start: 20120730
  14. MABTHERA [Suspect]
     Active Substance: RITUXIMAB
     Indication: PRODUCT USED FOR UNKNOWN INDICATION
     Dosage: 1000 MG
     Route: 065
     Dates: start: 201504
  15. METHOTREXATE. [Suspect]
     Active Substance: METHOTREXATE
     Dosage: 22.5 MG, UNK
     Route: 065
     Dates: start: 20130128, end: 2013
  16. METHOTREXATE. [Suspect]
     Active Substance: METHOTREXATE
     Dosage: 25 MG, UNK
     Route: 065
     Dates: start: 20160128
  17. METHOTREXATE. [Suspect]
     Active Substance: METHOTREXATE
     Dosage: 22.5 MG, UNK
     Route: 065
     Dates: start: 20120730
  18. METHOTREXATE. [Suspect]
     Active Substance: METHOTREXATE
     Dosage: 22.5 MG, UNK
     Route: 065
     Dates: start: 20120417, end: 2012
  19. HUMIRA [Suspect]
     Active Substance: ADALIMUMAB
     Indication: PRODUCT USED FOR UNKNOWN INDICATION
     Dosage: 40 MG, UNK
     Route: 065
     Dates: start: 201201, end: 2012
  20. HUMIRA [Suspect]
     Active Substance: ADALIMUMAB
     Dosage: 40 MG, UNK
     Route: 065
     Dates: start: 20130128, end: 2013
  21. HUMIRA [Suspect]
     Active Substance: ADALIMUMAB
     Dosage: 40 MG, UNK
     Route: 065
     Dates: start: 20150115
  22. METHOTREXATE. [Suspect]
     Active Substance: METHOTREXATE
     Dosage: 25 MG, UNK
     Route: 065
     Dates: start: 20170206
  23. METHOTREXATE. [Suspect]
     Active Substance: METHOTREXATE
     Dosage: 25 MG, UNK
     Route: 065
     Dates: start: 20180124

REACTIONS (2)
  - Umbilical hernia [Recovered/Resolved]
  - Macular degeneration [Unknown]

NARRATIVE: CASE EVENT DATE: 20170925
